FAERS Safety Report 12245529 (Version 1)
Quarter: 2016Q2

REPORT INFORMATION
  Report Type: Spontaneous
  Country: US (occurrence: None)
  Receive Date: 20160406
  Receipt Date: 20160406
  Transmission Date: 20160815
  Serious: No
  Sender: FDA-Public Use
  Company Number: None

PATIENT
  Sex: Male

DRUGS (2)
  1. TOUJEO [Suspect]
     Active Substance: INSULIN GLARGINE
  2. ACTOS [Suspect]
     Active Substance: PIOGLITAZONE HYDROCHLORIDE

REACTIONS (3)
  - Fatigue [None]
  - Somnolence [None]
  - Accident [None]
